FAERS Safety Report 18364596 (Version 1)
Quarter: 2020Q4

REPORT INFORMATION
  Report Type: Spontaneous
  Country: US (occurrence: US)
  Receive Date: 20201008
  Receipt Date: 20201008
  Transmission Date: 20210114
  Serious: No
  Sender: FDA-Public Use
  Company Number: None

PATIENT
  Age: 64 Year
  Sex: Female

DRUGS (7)
  1. ASPIRIN 81 MG TABLET DAILY [Concomitant]
  2. PANTOPRAZOLE 40MG TABLET DAILY [Concomitant]
  3. MAVYRET [Suspect]
     Active Substance: GLECAPREVIR\PIBRENTASVIR
     Indication: HEPATITIS C
     Dosage: IS THERAPY STILL ON-GOING? Y
     Route: 048
     Dates: start: 20201005, end: 20201007
  4. ATON/ASTATIN 20MG TABLET DAILY [Concomitant]
  5. AMLODIPINE [Concomitant]
     Active Substance: AMLODIPINE BESYLATE
  6. MELOXICAM 15MG TABLET DAILY [Concomitant]
  7. RAMIPIIL 10MG CAPSULE DAILY [Concomitant]

REACTIONS (1)
  - Pruritus [None]
